FAERS Safety Report 4412417-X (Version None)
Quarter: 2004Q3

REPORT INFORMATION
  Report Type: 
  Country: None (occurrence: None)
  Receive Date: 20040730
  Receipt Date: 20040726
  Transmission Date: 20050211
  Serious: Yes (Death)
  Sender: FDA-Public Use
  Company Number: CH-MERCK-0407CHE00035

PATIENT
  Sex: Male

DRUGS (2)
  1. CANCIDAS [Suspect]
     Indication: ASPERGILLOSIS
     Route: 042
     Dates: start: 20040701, end: 20040725
  2. VORICONAZOLE [Concomitant]
     Indication: ASPERGILLOSIS
     Route: 042
     Dates: start: 20040701, end: 20040725

REACTIONS (1)
  - ASPERGILLOSIS [None]
